FAERS Safety Report 7491164-4 (Version None)
Quarter: 2011Q2

REPORT INFORMATION
  Report Type: 
  Country: None (occurrence: None)
  Receive Date: 20110519
  Receipt Date: 20110510
  Transmission Date: 20111010
  Serious: Yes (Hospitalization)
  Sender: FDA-Public Use
  Company Number: US-AMGEN-USASP2011024172

PATIENT
  Age: 75 Year
  Sex: Female

DRUGS (2)
  1. EPOGEN [Suspect]
     Indication: DIALYSIS
     Dosage: 10000 IU, 3 TIMES/WK
  2. THALIDOMIDE [Concomitant]

REACTIONS (2)
  - FALL [None]
  - PATHOLOGICAL FRACTURE [None]
